FAERS Safety Report 15542901 (Version 1)
Quarter: 2018Q4

REPORT INFORMATION
  Report Type: Spontaneous
  Country: US (occurrence: US)
  Receive Date: 20181023
  Receipt Date: 20181023
  Transmission Date: 20190205
  Serious: Yes (Death, Hospitalization, Other)
  Sender: FDA-Public Use
  Company Number: US-ASTRAZENECA-2018SF36326

PATIENT
  Age: 796 Month
  Sex: Male

DRUGS (1)
  1. TAGRISSO [Suspect]
     Active Substance: OSIMERTINIB
     Indication: NON-SMALL CELL LUNG CANCER
     Route: 048
     Dates: start: 201711

REACTIONS (10)
  - Constipation [Unknown]
  - Thrombosis [Unknown]
  - Neoplasm [Unknown]
  - Drug ineffective [Unknown]
  - EGFR gene mutation [Unknown]
  - Product use issue [Recovered/Resolved]
  - Vomiting [Unknown]
  - Weight decreased [Unknown]
  - Blood pressure abnormal [Unknown]
  - Tumour pain [Unknown]

NARRATIVE: CASE EVENT DATE: 201711
